FAERS Safety Report 12629191 (Version 2)
Quarter: 2017Q1

REPORT INFORMATION
  Report Type: Report from Study
  Country: JP (occurrence: JP)
  Receive Date: 20160808
  Receipt Date: 20170208
  Transmission Date: 20170428
  Serious: Yes (Hospitalization)
  Sender: FDA-Public Use
  Company Number: PHJP2016JP000626

PATIENT
  Age: 72 Year
  Sex: Male

DRUGS (49)
  1. OFATUMUMAB [Suspect]
     Active Substance: OFATUMUMAB
     Dosage: 2000 MG, QD
     Route: 041
     Dates: start: 20160209, end: 20160209
  2. ACETAMINOPHEN. [Concomitant]
     Active Substance: ACETAMINOPHEN
     Dosage: 400 MG, QD
     Route: 065
     Dates: start: 20160119, end: 20160119
  3. OFATUMUMAB [Suspect]
     Active Substance: OFATUMUMAB
     Indication: CHRONIC LYMPHOCYTIC LEUKAEMIA
     Dosage: 300 MG, QD
     Route: 041
     Dates: start: 20160105, end: 20160105
  4. OFATUMUMAB [Suspect]
     Active Substance: OFATUMUMAB
     Dosage: 2000 MG, QD
     Route: 041
     Dates: start: 20160202, end: 20160202
  5. OFATUMUMAB [Suspect]
     Active Substance: OFATUMUMAB
     Dosage: 2000 MG, QD
     Route: 041
     Dates: start: 20160216, end: 20160216
  6. PREDNISONE. [Concomitant]
     Active Substance: PREDNISONE
     Dosage: 100 MG, QD
     Route: 065
     Dates: start: 20160112, end: 20160112
  7. PREDNISONE. [Concomitant]
     Active Substance: PREDNISONE
     Dosage: 100 MG, QD
     Route: 065
     Dates: start: 20160517, end: 20160517
  8. ACETAMINOPHEN. [Concomitant]
     Active Substance: ACETAMINOPHEN
     Dosage: 400 MG, QD
     Route: 065
     Dates: start: 20160209, end: 20160209
  9. POLARAMINE [Concomitant]
     Active Substance: DEXCHLORPHENIRAMINE MALEATE
     Dosage: 5 MG, QD
     Route: 065
     Dates: start: 20160223, end: 20160223
  10. POLARAMINE [Concomitant]
     Active Substance: DEXCHLORPHENIRAMINE MALEATE
     Dosage: 5 MG, QD
     Route: 065
     Dates: start: 20160322, end: 20160322
  11. ACETAMINOPHEN. [Concomitant]
     Active Substance: ACETAMINOPHEN
     Dosage: 400 MG, QD
     Route: 065
     Dates: start: 20160223, end: 20160223
  12. ACETAMINOPHEN. [Concomitant]
     Active Substance: ACETAMINOPHEN
     Dosage: 400 MG, QD
     Route: 065
     Dates: start: 20160419, end: 20160419
  13. POLARAMINE [Concomitant]
     Active Substance: DEXCHLORPHENIRAMINE MALEATE
     Dosage: 5 MG, QD
     Route: 065
     Dates: start: 20160119, end: 20160119
  14. POLARAMINE [Concomitant]
     Active Substance: DEXCHLORPHENIRAMINE MALEATE
     Dosage: 5 MG, QD
     Route: 065
     Dates: start: 20160216, end: 20160216
  15. POLARAMINE [Concomitant]
     Active Substance: DEXCHLORPHENIRAMINE MALEATE
     Dosage: 5 MG, QD
     Route: 065
     Dates: start: 20160628, end: 20160628
  16. OFATUMUMAB [Suspect]
     Active Substance: OFATUMUMAB
     Dosage: 2000 MG, QD
     Route: 041
     Dates: start: 20160126, end: 20160126
  17. ACETAMINOPHEN. [Concomitant]
     Active Substance: ACETAMINOPHEN
     Dosage: 400 MG, QD
     Route: 065
     Dates: start: 20160112, end: 20160112
  18. ACETAMINOPHEN. [Concomitant]
     Active Substance: ACETAMINOPHEN
     Dosage: 400 MG, QD
     Route: 065
     Dates: start: 20160628, end: 20160628
  19. POLARAMINE [Concomitant]
     Active Substance: DEXCHLORPHENIRAMINE MALEATE
     Dosage: 5 MG, QD
     Route: 065
     Dates: start: 20160202, end: 20160202
  20. POLARAMINE [Concomitant]
     Active Substance: DEXCHLORPHENIRAMINE MALEATE
     Dosage: 5 MG, QD
     Route: 065
     Dates: start: 20160517, end: 20160517
  21. INSULIN [Concomitant]
     Active Substance: INSULIN NOS
     Indication: DIABETES MELLITUS
     Dosage: UNK
     Route: 065
  22. OFATUMUMAB [Suspect]
     Active Substance: OFATUMUMAB
     Dosage: 2000 MG, QD
     Route: 041
     Dates: start: 20160112, end: 20160112
  23. OFATUMUMAB [Suspect]
     Active Substance: OFATUMUMAB
     Dosage: 2000 MG, QD
     Route: 041
     Dates: start: 20160517, end: 20160517
  24. PREDNISONE. [Concomitant]
     Active Substance: PREDNISONE
     Indication: PRODUCT USED FOR UNKNOWN INDICATION
     Dosage: 100 MG, QD
     Route: 065
     Dates: start: 20160105, end: 20160105
  25. PREDNISONE. [Concomitant]
     Active Substance: PREDNISONE
     Dosage: 100 MG, QD
     Route: 065
     Dates: start: 20160126, end: 20160126
  26. PREDNISONE. [Concomitant]
     Active Substance: PREDNISONE
     Dosage: 100 MG, QD
     Route: 065
     Dates: start: 20160209, end: 20160209
  27. ACETAMINOPHEN. [Concomitant]
     Active Substance: ACETAMINOPHEN
     Indication: PRODUCT USED FOR UNKNOWN INDICATION
     Dosage: 400 MG, QD
     Route: 065
     Dates: start: 20160105, end: 20160105
  28. ACETAMINOPHEN. [Concomitant]
     Active Substance: ACETAMINOPHEN
     Dosage: 400 MG, QD
     Route: 065
     Dates: start: 20160216, end: 20160216
  29. POLARAMINE [Concomitant]
     Active Substance: DEXCHLORPHENIRAMINE MALEATE
     Dosage: 5 MG, QD
     Route: 065
     Dates: start: 20160419, end: 20160419
  30. OFATUMUMAB [Suspect]
     Active Substance: OFATUMUMAB
     Dosage: 2000 MG, QD
     Route: 041
     Dates: start: 20160322, end: 20160322
  31. PREDNISONE. [Concomitant]
     Active Substance: PREDNISONE
     Dosage: 100 MG, QD
     Route: 065
     Dates: start: 20160202, end: 20160202
  32. PREDNISONE. [Concomitant]
     Active Substance: PREDNISONE
     Dosage: 100 MG, QD
     Route: 065
     Dates: start: 20160216, end: 20160216
  33. PREDNISONE. [Concomitant]
     Active Substance: PREDNISONE
     Dosage: 100 MG, QD
     Route: 065
     Dates: start: 20160419, end: 20160419
  34. ACETAMINOPHEN. [Concomitant]
     Active Substance: ACETAMINOPHEN
     Dosage: 400 MG, QD
     Route: 065
     Dates: start: 20160517, end: 20160517
  35. POLARAMINE [Concomitant]
     Active Substance: DEXCHLORPHENIRAMINE MALEATE
     Indication: PRODUCT USED FOR UNKNOWN INDICATION
     Dosage: 5 MG, QD
     Route: 065
     Dates: start: 20160105, end: 20160105
  36. OFATUMUMAB [Suspect]
     Active Substance: OFATUMUMAB
     Dosage: 2000 MG, QD
     Route: 041
     Dates: start: 20160223, end: 20160223
  37. OFATUMUMAB [Suspect]
     Active Substance: OFATUMUMAB
     Dosage: 2000 MG, QD
     Route: 041
     Dates: start: 20160419, end: 20160419
  38. PREDNISONE. [Concomitant]
     Active Substance: PREDNISONE
     Dosage: 100 MG, QD
     Route: 065
     Dates: start: 20160119, end: 20160119
  39. ACETAMINOPHEN. [Concomitant]
     Active Substance: ACETAMINOPHEN
     Dosage: 400 MG, QD
     Route: 065
     Dates: start: 20160202, end: 20160202
  40. POLARAMINE [Concomitant]
     Active Substance: DEXCHLORPHENIRAMINE MALEATE
     Dosage: 5 MG, QD
     Route: 065
     Dates: start: 20160209, end: 20160209
  41. OFATUMUMAB [Suspect]
     Active Substance: OFATUMUMAB
     Dosage: 2000 MG, QD
     Route: 041
     Dates: start: 20160119, end: 20160119
  42. OFATUMUMAB [Suspect]
     Active Substance: OFATUMUMAB
     Dosage: 2000 MG, QD
     Route: 041
     Dates: start: 20160628, end: 20160628
  43. PREDNISONE. [Concomitant]
     Active Substance: PREDNISONE
     Dosage: 100 MG, QD
     Route: 065
     Dates: start: 20160223, end: 20160223
  44. PREDNISONE. [Concomitant]
     Active Substance: PREDNISONE
     Dosage: 100 MG, QD
     Route: 065
     Dates: start: 20160322, end: 20160322
  45. PREDNISONE. [Concomitant]
     Active Substance: PREDNISONE
     Dosage: 100 MG, QD
     Route: 065
     Dates: start: 20160628, end: 20160628
  46. ACETAMINOPHEN. [Concomitant]
     Active Substance: ACETAMINOPHEN
     Dosage: 400 MG, QD
     Route: 065
     Dates: start: 20160126, end: 20160126
  47. ACETAMINOPHEN. [Concomitant]
     Active Substance: ACETAMINOPHEN
     Dosage: 400 MG, QD
     Route: 065
     Dates: start: 20160322, end: 20160322
  48. POLARAMINE [Concomitant]
     Active Substance: DEXCHLORPHENIRAMINE MALEATE
     Dosage: 5 MG, QD
     Route: 065
     Dates: start: 20160112, end: 20160112
  49. POLARAMINE [Concomitant]
     Active Substance: DEXCHLORPHENIRAMINE MALEATE
     Dosage: 5 MG, QD
     Route: 065
     Dates: start: 20160126, end: 20160126

REACTIONS (4)
  - Head discomfort [Recovered/Resolved]
  - Chills [Recovered/Resolved]
  - Pyrexia [Recovered/Resolved]
  - Bronchitis [Recovering/Resolving]

NARRATIVE: CASE EVENT DATE: 20160105
